FAERS Safety Report 7014610-9 (Version None)
Quarter: 2010Q3

REPORT INFORMATION
  Report Type: 
  Country: None (occurrence: None)
  Receive Date: 20100922
  Receipt Date: 20100910
  Transmission Date: 20110219
  Serious: Yes (Other)
  Sender: FDA-Public Use
  Company Number: 018612

PATIENT
  Sex: Female

DRUGS (2)
  1. LACOSAMIDE [Suspect]
     Indication: STATUS EPILEPTICUS
     Dosage: (RECEIVED TWO DOSES)
  2. LEVETIRACETAM [Concomitant]

REACTIONS (1)
  - ANGIOEDEMA [None]
